FAERS Safety Report 24624620 (Version 1)
Quarter: 2024Q4

REPORT INFORMATION
  Report Type: Spontaneous
  Country: US (occurrence: None)
  Receive Date: 20241115
  Receipt Date: 20241115
  Transmission Date: 20250115
  Serious: No
  Sender: Public
  Company Number: None

PATIENT
  Age: 73 Year
  Sex: Male

DRUGS (1)
  1. DOXEPIN [Suspect]
     Active Substance: DOXEPIN
     Indication: Insomnia
     Dosage: 6.00 MG AS NEDED ORL
     Route: 048
     Dates: start: 20240626, end: 20240709

REACTIONS (1)
  - Hallucination [None]

NARRATIVE: CASE EVENT DATE: 20240709
